FAERS Safety Report 24831310 (Version 1)
Quarter: 2025Q1

REPORT INFORMATION
  Report Type: Spontaneous
  Country: US (occurrence: US)
  Receive Date: 20250110
  Receipt Date: 20250110
  Transmission Date: 20250409
  Serious: No
  Sender: SANOFI AVENTIS
  Company Number: US-SA-2025SA008810

PATIENT
  Sex: Male

DRUGS (1)
  1. DUPIXENT [Suspect]
     Active Substance: DUPILUMAB
     Indication: Dermatitis atopic
     Dosage: 300 MG  QOW
     Route: 058

REACTIONS (4)
  - Influenza like illness [Not Recovered/Not Resolved]
  - Nausea [Unknown]
  - Chills [Unknown]
  - Abdominal pain upper [Unknown]
